FAERS Safety Report 8402990 (Version 2)
Quarter: 2014Q4

REPORT INFORMATION
  Report Type: Spontaneous
  Country: US (occurrence: US)
  Receive Date: 20120213
  Receipt Date: 20141104
  Transmission Date: 20150529
  Serious: Yes (Death, Hospitalization, Other)
  Sender: FDA-Public Use
  Company Number: US-GLAXOSMITHKLINE-B0723014A

PATIENT
  Sex: Male
  Weight: 128 kg

DRUGS (2)
  1. AVANDIA [Suspect]
     Active Substance: ROSIGLITAZONE MALEATE
     Indication: DIABETES MELLITUS
     Dosage: UNK
     Route: 048
     Dates: start: 200207, end: 200808
  2. ROSIGLITAZONE MALEATE. [Suspect]
     Active Substance: ROSIGLITAZONE MALEATE
     Indication: DIABETES MELLITUS
     Dosage: 4 MG, UNK
     Dates: start: 20050519, end: 20050605

REACTIONS (5)
  - Death [Fatal]
  - Cardiac failure congestive [Unknown]
  - Coronary artery disease [Unknown]
  - Pulmonary embolism [Unknown]
  - Congestive cardiomyopathy [Unknown]
